FAERS Safety Report 22347860 (Version 1)
Quarter: 2023Q2

REPORT INFORMATION
  Report Type: Other
  Country: CA (occurrence: CA)
  Receive Date: 20230522
  Receipt Date: 20230522
  Transmission Date: 20230721
  Serious: Yes (Other)
  Sender: FDA-Public Use
  Company Number: CA-APOTEX-2023AP008310

PATIENT
  Age: 73 Year
  Sex: Female
  Weight: 74.83 kg

DRUGS (3)
  1. PREGABALIN [Suspect]
     Active Substance: PREGABALIN
     Indication: Occipital neuralgia
     Dosage: 25 MILLIGRAM, QID
     Route: 048
  2. ATACAND [Concomitant]
     Active Substance: CANDESARTAN CILEXETIL
     Indication: Product used for unknown indication
     Dosage: UNK
     Route: 065
  3. METOPROLOL [Concomitant]
     Active Substance: METOPROLOL
     Indication: Product used for unknown indication
     Dosage: UNK
     Route: 065

REACTIONS (9)
  - Myalgia [Unknown]
  - Condition aggravated [Unknown]
  - Occipital neuralgia [Unknown]
  - Muscle spasms [Unknown]
  - Flatulence [Unknown]
  - Arthralgia [Unknown]
  - Headache [Unknown]
  - Diarrhoea [Unknown]
  - Nausea [Unknown]
